FAERS Safety Report 7936739-0 (Version None)
Quarter: 2011Q4

REPORT INFORMATION
  Report Type: 
  Country: None (occurrence: None)
  Receive Date: 20111121
  Receipt Date: 20111108
  Transmission Date: 20120403
  Serious: Yes (Death)
  Sender: FDA-Public Use
  Company Number: 2011MA016369

PATIENT
  Age: 63 Year
  Sex: Male

DRUGS (2)
  1. IRINOTECAN HYDROCHLORIDE [Suspect]
     Indication: GASTRIC CANCER
  2. TS-1 (NO PREF. NAME) [Suspect]
     Indication: GASTRIC CANCER

REACTIONS (3)
  - METASTASES TO LIVER [None]
  - NEOPLASM MALIGNANT [None]
  - DRUG RESISTANCE [None]
